FAERS Safety Report 5726295-X (Version None)
Quarter: 2008Q2

REPORT INFORMATION
  Report Type: 
  Country: None (occurrence: None)
  Receive Date: 20080501
  Receipt Date: 20080501
  Transmission Date: 20081010
  Serious: Yes (Hospitalization)
  Sender: FDA-Public Use
  Company Number: None

PATIENT
  Age: 67 Year
  Sex: Male

DRUGS (2)
  1. TACROLIMUS [Suspect]
     Indication: IMMUNOSUPPRESSANT DRUG THERAPY
     Dosage: 1 MG TID PO
     Route: 048
     Dates: start: 19970127
  2. SULFAMETHOXAZOLE AND TRIMETHOPRIM [Suspect]
     Indication: PROPHYLAXIS
     Dosage: 400/80 MG OTHER PO
     Route: 048
     Dates: start: 19970127, end: 20080205

REACTIONS (1)
  - HYPERKALAEMIA [None]
